FAERS Safety Report 24564174 (Version 2)
Quarter: 2024Q4

REPORT INFORMATION
  Report Type: Spontaneous
  Country: CA (occurrence: CA)
  Receive Date: 20241030
  Receipt Date: 20241106
  Transmission Date: 20250114
  Serious: Yes (Death)
  Sender: CHEPLAPHARM
  Company Number: CA-ELI_LILLY_AND_COMPANY-CA202410011922

PATIENT
  Age: 46 Year
  Sex: Female

DRUGS (7)
  1. OLANZAPINE [Suspect]
     Active Substance: OLANZAPINE
     Indication: Product used for unknown indication
     Dosage: UNK, UNKNOWN
  2. ARIPIPRAZOLE [Suspect]
     Active Substance: ARIPIPRAZOLE
     Indication: Product used for unknown indication
     Dosage: UNK, UNKNOWN
  3. CAFFEINE [Suspect]
     Active Substance: CAFFEINE
     Indication: Product used for unknown indication
     Dosage: UNK, UNKNOWN
  4. FENTANYL [Suspect]
     Active Substance: FENTANYL
     Indication: Product used for unknown indication
     Dosage: UNK, UNKNOWN
  5. LORAZEPAM [Suspect]
     Active Substance: LORAZEPAM
     Indication: Product used for unknown indication
     Dosage: UNK, UNKNOWN
  6. PARAFLUOROFENTANYL [Suspect]
     Active Substance: PARAFLUOROFENTANYL
     Indication: Product used for unknown indication
     Dosage: UNK, UNKNOWN
  7. 7-BROMO-5-PHENYL-1,2-DI-HYDRO-3H-1,4-BENZODIAZEPINE-2-ONE [Suspect]
     Active Substance: 7-BROMO-5-PHENYL-1,2-DI-HYDRO-3H-1,4-BENZODIAZEPINE-2-ONE

REACTIONS (1)
  - Toxicity to various agents [Fatal]
